FAERS Safety Report 13323186 (Version 4)
Quarter: 2017Q2

REPORT INFORMATION
  Report Type: Spontaneous
  Country: JP (occurrence: JP)
  Receive Date: 20170309
  Receipt Date: 20170428
  Transmission Date: 20170830
  Serious: Yes (Life-Threatening, Hospitalization)
  Sender: FDA-Public Use
  Company Number: JP-ELI_LILLY_AND_COMPANY-JP201703001242

PATIENT
  Age: 69 Year
  Sex: Male
  Weight: 51.4 kg

DRUGS (18)
  1. 5 FU [Suspect]
     Active Substance: FLUOROURACIL
     Indication: RECTOSIGMOID CANCER RECURRENT
     Dosage: 610 MG, OTHER
     Route: 042
     Dates: start: 20161226, end: 20170128
  2. LEVOFOLINATE CALCIUM [Suspect]
     Active Substance: LEVOLEUCOVORIN CALCIUM
     Indication: ADENOCARCINOMA OF COLON
  3. GRANISETRON                        /01178102/ [Concomitant]
     Active Substance: GRANISETRON
     Indication: PROPHYLAXIS
     Dosage: UNK
     Route: 042
     Dates: start: 20161226, end: 20170126
  4. SODIUM BICARBONATE. [Concomitant]
     Active Substance: SODIUM BICARBONATE
     Dosage: 3 G, TID
     Dates: start: 20161226
  5. DEXART [Concomitant]
     Active Substance: DEXAMETHASONE SODIUM PHOSPHATE
     Indication: PROPHYLAXIS
     Dosage: UNK
     Route: 042
     Dates: start: 20161226, end: 20170126
  6. MOSAPRIDE CITRATE [Concomitant]
     Active Substance: MOSAPRIDE CITRATE
     Dosage: 5 MG, TID
     Route: 048
     Dates: start: 20161226
  7. LEVOFOLINATE CALCIUM [Suspect]
     Active Substance: LEVOLEUCOVORIN CALCIUM
     Indication: RECTOSIGMOID CANCER RECURRENT
     Dosage: 300 MG, OTHER
     Route: 042
     Dates: start: 20161226, end: 20170126
  8. CYRAMZA [Suspect]
     Active Substance: RAMUCIRUMAB
     Indication: RECTOSIGMOID CANCER RECURRENT
     Dosage: 410 MG, OTHER
     Route: 042
     Dates: start: 20161226, end: 20170126
  9. TOPOTECIN [Suspect]
     Active Substance: IRINOTECAN HYDROCHLORIDE
     Indication: ADENOCARCINOMA OF COLON
  10. MAGNESIUM OXIDE. [Concomitant]
     Active Substance: MAGNESIUM OXIDE
     Dosage: 1.5 G, TID
     Dates: start: 20161226
  11. MIYA-BM [Concomitant]
     Active Substance: CLOSTRIDIUM BUTYRICUM SPORES STRAIN M-55
     Dosage: 3 G, TID
     Dates: start: 20161226
  12. NIFEDIPINE. [Concomitant]
     Active Substance: NIFEDIPINE
     Dosage: 40 MG, EACH MORNING
  13. 5 FU [Suspect]
     Active Substance: FLUOROURACIL
     Indication: ADENOCARCINOMA OF COLON
     Dosage: 3650 MG, OTHER
     Route: 042
     Dates: start: 20161226, end: 20170128
  14. TOPOTECIN [Suspect]
     Active Substance: IRINOTECAN HYDROCHLORIDE
     Indication: RECTOSIGMOID CANCER RECURRENT
     Dosage: 228 MG, OTHER
     Route: 042
     Dates: start: 20161226, end: 20170126
  15. METOCLOPRAMIDE. [Concomitant]
     Active Substance: METOCLOPRAMIDE
     Indication: PROPHYLAXIS
     Dosage: 5 MG, TID
     Route: 048
     Dates: start: 20161226
  16. CYRAMZA [Suspect]
     Active Substance: RAMUCIRUMAB
     Indication: ADENOCARCINOMA OF COLON
  17. URSODEOXYCHOLIC ACID [Concomitant]
     Active Substance: URSODIOL
     Indication: PROPHYLAXIS
     Dosage: 100 MG, TID
     Route: 048
     Dates: start: 20161226
  18. DECADRON [Concomitant]
     Active Substance: DEXAMETHASONE
     Dosage: 4 MG, BID
     Route: 048
     Dates: start: 20161031, end: 20161101

REACTIONS (3)
  - Interstitial lung disease [Recovered/Resolved]
  - Hepatic function abnormal [Recovered/Resolved]
  - Drug eruption [Recovered/Resolved]

NARRATIVE: CASE EVENT DATE: 20170205
